FAERS Safety Report 24442130 (Version 2)
Quarter: 2024Q4

REPORT INFORMATION
  Report Type: Report from Study
  Country: KR (occurrence: KR)
  Receive Date: 20241016
  Receipt Date: 20241017
  Transmission Date: 20250114
  Serious: No
  Sender: ROCHE
  Company Number: KR-CHUGAI-2024009556

PATIENT
  Age: 5 Year
  Sex: Male
  Weight: 23.2 kg

DRUGS (6)
  1. HEMLIBRA [Suspect]
     Active Substance: EMICIZUMAB-KXWH
     Indication: Haemophilia A without inhibitors
     Dosage: 3 MILLIGRAM/KILOGRAM, ONCE/WEEK
     Route: 058
     Dates: start: 20230531, end: 20230621
  2. HEMLIBRA [Suspect]
     Active Substance: EMICIZUMAB-KXWH
     Dosage: 3 MILLIGRAM/KILOGRAM, ONCE/2WEEKS
     Route: 058
     Dates: start: 20230628
  3. ADYNOVATE [Concomitant]
     Active Substance: ANTIHEMOPHILIC FACTOR, HUMAN RECOMBINANT
     Dosage: 750 INTERNATIONAL UNIT, BIW
     Dates: start: 20220816, end: 20230530
  4. ADYNOVATE [Concomitant]
     Active Substance: ANTIHEMOPHILIC FACTOR, HUMAN RECOMBINANT
     Dosage: 735 INTERNATIONAL UNIT
     Dates: start: 20230531, end: 20230531
  5. ADYNOVATE [Concomitant]
     Active Substance: ANTIHEMOPHILIC FACTOR, HUMAN RECOMBINANT
     Dosage: 735 INTERNATIONAL UNIT
     Dates: start: 20230607, end: 20230607
  6. SKY CELLFLU QUADRIVALENT [Concomitant]
     Indication: Influenza immunisation
     Dosage: 1SYRINGE, SINGLE
     Dates: start: 20231018, end: 20231018

REACTIONS (2)
  - Injection site pain [Recovered/Resolved]
  - Injection site bruising [Recovered/Resolved]

NARRATIVE: CASE EVENT DATE: 20240207
